FAERS Safety Report 5122674-2 (Version None)
Quarter: 2006Q4

REPORT INFORMATION
  Report Type: 
  Country: None (occurrence: None)
  Receive Date: 20061005
  Receipt Date: 20061005
  Transmission Date: 20070319
  Serious: Yes (Hospitalization)
  Sender: FDA-Public Use
  Company Number: None

PATIENT
  Age: 60 Year
  Sex: Male
  Weight: 82.5547 kg

DRUGS (1)
  1. COUMADIN [Suspect]
     Indication: ARTERIAL BYPASS OPERATION
     Dosage: 10MG DAILY PO
     Route: 048
     Dates: start: 20031031, end: 20060401

REACTIONS (9)
  - ANGIOPATHY [None]
  - BRONCHITIS [None]
  - COUGH [None]
  - HAEMOPTYSIS [None]
  - INTERNATIONAL NORMALISED RATIO INCREASED [None]
  - MUCOSAL HAEMORRHAGE [None]
  - MUCOUS MEMBRANE DISORDER [None]
  - NEOPLASM PROGRESSION [None]
  - TUMOUR INVASION [None]
